FAERS Safety Report 25860351 (Version 3)
Quarter: 2025Q4

REPORT INFORMATION
  Report Type: Spontaneous
  Country: EU (occurrence: EU)
  Receive Date: 20250929
  Receipt Date: 20251007
  Transmission Date: 20260118
  Serious: Yes (Hospitalization, Other)
  Sender: NOVARTIS
  Company Number: EU-ORESUND-25OPAJY1024P

PATIENT
  Age: 36 Year
  Sex: Male

DRUGS (9)
  1. SECUKINUMAB [Suspect]
     Active Substance: SECUKINUMAB
     Indication: Psoriatic arthropathy
     Dosage: 300 MG, QW (300 MG WEEKLY)
     Route: 065
     Dates: start: 202101
  2. SECUKINUMAB [Suspect]
     Active Substance: SECUKINUMAB
     Indication: Psoriasis
     Dosage: 300 MG, QMO
     Route: 065
  3. INFLIXIMAB [Suspect]
     Active Substance: INFLIXIMAB
     Indication: Psoriasis
     Dosage: 5 MG/KG (BODY WEIGHT IN WEEKS 0, 2, AND 6)
     Route: 065
     Dates: start: 2018
  4. INFLIXIMAB [Suspect]
     Active Substance: INFLIXIMAB
     Indication: Psoriatic arthropathy
     Dosage: MAINTENANCE INFUSION EVERY 8 WEEKS SINCE MAY 2018
     Route: 065
     Dates: start: 201805
  5. INFLIXIMAB [Suspect]
     Active Substance: INFLIXIMAB
     Dosage: IN WEEKS 0, 2, AND 6
     Route: 065
     Dates: start: 201805
  6. INFLIXIMAB [Suspect]
     Active Substance: INFLIXIMAB
     Dosage: MAINTENANCE INFUSION EVERY 8 WEEKS
     Route: 065
     Dates: end: 201901
  7. ACITRETIN [Suspect]
     Active Substance: ACITRETIN
     Indication: Product used for unknown indication
     Dosage: 35 MG, QD
     Route: 065
  8. METHOTREXATE [Suspect]
     Active Substance: METHOTREXATE
     Indication: Product used for unknown indication
     Dosage: 10 MG, QW (10 MG A WEEK)
     Route: 065
  9. METHYLPREDNISOLONE [Suspect]
     Active Substance: METHYLPREDNISOLONE
     Indication: Product used for unknown indication
     Dosage: 4 MG, QD
     Route: 065

REACTIONS (7)
  - Superficial spreading melanoma stage unspecified [Unknown]
  - Colitis ulcerative [Unknown]
  - Fibrous histiocytoma [Unknown]
  - Abscess intestinal [Unknown]
  - Gastrointestinal mucosal necrosis [Unknown]
  - Large intestine polyp [Unknown]
  - Melanocytic naevus [Unknown]
